FAERS Safety Report 6263472-6 (Version None)
Quarter: 2009Q3

REPORT INFORMATION
  Report Type: 
  Country: None (occurrence: None)
  Receive Date: 20090710
  Receipt Date: 20090515
  Transmission Date: 20100115
  Serious: No
  Sender: FDA-Public Use
  Company Number: A0782347A

PATIENT
  Age: 20 Year
  Sex: Male

DRUGS (2)
  1. FLOVENT [Suspect]
     Dosage: 2PUFF TWICE PER DAY
     Route: 055
     Dates: start: 20081101
  2. NO CONCURRENT MEDICATION [Concomitant]

REACTIONS (4)
  - DRUG INEFFECTIVE [None]
  - DYSPHAGIA [None]
  - OESOPHAGEAL FOOD IMPACTION [None]
  - THERAPEUTIC RESPONSE UNEXPECTED [None]
